FAERS Safety Report 10405726 (Version 1)
Quarter: 2014Q3

REPORT INFORMATION
  Report Type: Report from Study
  Country: US (occurrence: None)
  Receive Date: 20140821
  Receipt Date: 20140821
  Transmission Date: 20150326
  Serious: Yes (Disabling)
  Sender: FDA-Public Use
  Company Number: AUR-APL-2014-08805

PATIENT
  Age: 56 Year
  Weight: 77.6 kg

DRUGS (7)
  1. FLAXSEED OIL (LINUM USITATISSIMUM SEED OIL) [Concomitant]
  2. ATENOLOL. [Suspect]
     Active Substance: ATENOLOL
     Indication: HYPERTENSION
     Route: 048
     Dates: start: 1994
  3. NEXIUM [Suspect]
     Active Substance: ESOMEPRAZOLE MAGNESIUM
     Indication: GASTROOESOPHAGEAL REFLUX DISEASE
     Route: 048
     Dates: start: 1994, end: 201402
  4. NAPROXEN. [Concomitant]
     Active Substance: NAPROXEN
  5. OMEPRAZOLE. [Suspect]
     Active Substance: OMEPRAZOLE
     Indication: GASTROOESOPHAGEAL REFLUX DISEASE
     Route: 048
     Dates: start: 201402
  6. ATORVASTATIN [Concomitant]
     Active Substance: ATORVASTATIN
  7. CRESTOR [Suspect]
     Active Substance: ROSUVASTATIN CALCIUM
     Indication: BLOOD CHOLESTEROL ABNORMAL
     Route: 048
     Dates: end: 2014

REACTIONS (7)
  - Intervertebral disc degeneration [None]
  - Drug ineffective [None]
  - Blood glucose increased [None]
  - Oesophageal disorder [None]
  - Gastrooesophageal reflux disease [None]
  - Abdominal discomfort [None]
  - Intentional product misuse [None]

NARRATIVE: CASE EVENT DATE: 201402
